FAERS Safety Report 12460171 (Version 1)
Quarter: 2016Q2

REPORT INFORMATION
  Report Type: Spontaneous
  Country: IN (occurrence: IN)
  Receive Date: 20160613
  Receipt Date: 20160613
  Transmission Date: 20160815
  Serious: Yes (Hospitalization)
  Sender: FDA-Public Use
  Company Number: IN-PFIZER INC-2016289406

PATIENT
  Age: 42 Year
  Sex: Male

DRUGS (1)
  1. CRIZALK [Suspect]
     Active Substance: CRIZOTINIB
     Indication: NEOPLASM MALIGNANT
     Dosage: 250 MG, 2X/DAY
     Route: 048
     Dates: start: 20140521, end: 2016

REACTIONS (4)
  - Lung infection [Recovered/Resolved]
  - Neoplasm malignant [Unknown]
  - Disease progression [Unknown]
  - Respiratory disorder [Unknown]
